FAERS Safety Report 7550206-8 (Version None)
Quarter: 2011Q2

REPORT INFORMATION
  Report Type: 
  Country: None (occurrence: None)
  Receive Date: 20110615
  Receipt Date: 20110601
  Transmission Date: 20111010
  Serious: Yes (Hospitalization)
  Sender: FDA-Public Use
  Company Number: DE-UCBSA-034560

PATIENT
  Sex: Male

DRUGS (1)
  1. KEPPRA [Suspect]
     Dates: start: 20090927, end: 20100414

REACTIONS (1)
  - CONVULSION [None]
